FAERS Safety Report 4396950-5 (Version None)
Quarter: 2004Q3

REPORT INFORMATION
  Report Type: 
  Country: None (occurrence: None)
  Receive Date: 20040714
  Receipt Date: 20040701
  Transmission Date: 20050211
  Serious: Yes (Hospitalization)
  Sender: FDA-Public Use
  Company Number: PHBS2004JP08786

PATIENT
  Age: 86 Year
  Sex: Female

DRUGS (4)
  1. TOFRANIL [Suspect]
     Indication: NOCTURIA
     Dosage: 10 MG/D
     Route: 048
     Dates: start: 20040615, end: 20040628
  2. CLARITHROMYCIN [Suspect]
     Dosage: 400 MG/D
     Route: 048
     Dates: start: 20040618, end: 20040626
  3. NEUROTROPIN [Suspect]
     Dosage: 4 DF/D
     Route: 048
     Dates: start: 20040618, end: 20040628
  4. ASTHMOLYSIN-M [Suspect]
     Dosage: 2 DF/D
     Route: 048
     Dates: start: 20040623, end: 20040627

REACTIONS (3)
  - ERYTHEMA [None]
  - RASH [None]
  - URTICARIA [None]
